FAERS Safety Report 9331092 (Version 1)
Quarter: 2013Q2

REPORT INFORMATION
  Report Type: Spontaneous
  Country: US (occurrence: US)
  Receive Date: 20130605
  Receipt Date: 20130605
  Transmission Date: 20140414
  Serious: Yes (Death)
  Sender: FDA-Public Use
  Company Number: US-BRISTOL-MYERS SQUIBB COMPANY-18971218

PATIENT
  Age: 96 Year
  Sex: Female
  Weight: 117.91 kg

DRUGS (2)
  1. COUMADIN [Suspect]
  2. WARFARIN SODIUM [Suspect]

REACTIONS (1)
  - Death [Fatal]
